FAERS Safety Report 10574485 (Version 1)
Quarter: 2014Q4

REPORT INFORMATION
  Report Type: Spontaneous
  Country: FR (occurrence: FR)
  Receive Date: 20141110
  Receipt Date: 20141110
  Transmission Date: 20150529
  Serious: Yes (Hospitalization)
  Sender: FDA-Public Use
  Company Number: FR-ELI_LILLY_AND_COMPANY-FR201410010099

PATIENT
  Age: 45 Year
  Sex: Female

DRUGS (11)
  1. SERESTA [Concomitant]
     Active Substance: OXAZEPAM
     Dosage: 50 MG, QD
     Route: 065
  2. IMOVANE [Concomitant]
     Active Substance: ZOPICLONE
     Dosage: 7.5 MG, EACH EVENING
     Route: 065
  3. ESPERAL [Suspect]
     Active Substance: DISULFIRAM
     Dosage: 500 MG, QD
     Route: 048
     Dates: start: 201409
  4. LEPTICUR [Suspect]
     Active Substance: TROPATEPINE HYDROCHLORIDE
     Indication: LOSS OF CONTROL OF LEGS
  5. ZYPREXA [Suspect]
     Active Substance: OLANZAPINE
     Indication: PRODUCT USED FOR UNKNOWN INDICATION
     Dosage: 5 MG, QD
     Route: 048
     Dates: end: 20140916
  6. SERESTA [Concomitant]
     Active Substance: OXAZEPAM
     Dosage: 12 DF, QID
     Route: 065
  7. LEPTICUR [Suspect]
     Active Substance: TROPATEPINE HYDROCHLORIDE
     Indication: DYSARTHRIA
     Dosage: 10 MG, BID
     Route: 048
     Dates: start: 20140910, end: 20140916
  8. ESPERAL [Suspect]
     Active Substance: DISULFIRAM
     Indication: PRODUCT USED FOR UNKNOWN INDICATION
     Dosage: 500 MG, BID
     Route: 048
     Dates: start: 201408
  9. TERCIAN [Suspect]
     Active Substance: CYAMEMAZINE
     Indication: PRODUCT USED FOR UNKNOWN INDICATION
     Dosage: 25 MG, BID
     Route: 048
     Dates: start: 201408
  10. THERALENE [Suspect]
     Active Substance: TRIMEPRAZINE
     Indication: PRODUCT USED FOR UNKNOWN INDICATION
     Dosage: 30 GTT, QD
     Route: 048
     Dates: start: 201408
  11. LEPTICUR [Suspect]
     Active Substance: TROPATEPINE HYDROCHLORIDE
     Indication: DYSPHEMIA

REACTIONS (4)
  - Dysarthria [Unknown]
  - Epilepsy [Recovered/Resolved]
  - Dysphemia [Unknown]
  - Loss of control of legs [Unknown]

NARRATIVE: CASE EVENT DATE: 201408
